FAERS Safety Report 19651683 (Version 2)
Quarter: 2021Q3

REPORT INFORMATION
  Report Type: Spontaneous
  Country: US (occurrence: US)
  Receive Date: 20210803
  Receipt Date: 20210902
  Transmission Date: 20211014
  Serious: Yes (Hospitalization, Other)
  Sender: FDA-Public Use
  Company Number: US-PFIZER INC-2021531682

PATIENT
  Age: 32 Year
  Sex: Female
  Weight: 77 kg

DRUGS (3)
  1. MAGNESIUM SULFATE. [Suspect]
     Active Substance: MAGNESIUM SULFATE
     Indication: PRE-ECLAMPSIA
     Dosage: UNK
     Route: 042
     Dates: start: 20210506, end: 20210507
  2. HYDRALAZINE [Concomitant]
     Active Substance: HYDRALAZINE HYDROCHLORIDE
     Indication: BLOOD PRESSURE INCREASED
     Dosage: UNK
  3. MAGNESIUM SULFATE. [Suspect]
     Active Substance: MAGNESIUM SULFATE
     Dosage: 2GM/HR CONTINUOUS INFUSION (6C LOADING DOSE)
     Route: 042
     Dates: start: 20210507, end: 20210508

REACTIONS (12)
  - Cerebrovascular accident [Recovered/Resolved]
  - Mental status changes [Recovered/Resolved]
  - Dysphagia [Recovered/Resolved]
  - Muscle tightness [Recovered/Resolved]
  - Failed induction of labour [Recovered/Resolved]
  - Drug ineffective [Unknown]
  - Facial paralysis [Recovered/Resolved]
  - Dizziness [Unknown]
  - Hyporesponsive to stimuli [Recovered/Resolved]
  - Pain in jaw [Recovered/Resolved]
  - Posterior reversible encephalopathy syndrome [Recovered/Resolved]
  - Dysphemia [Recovered/Resolved]

NARRATIVE: CASE EVENT DATE: 20210507
